FAERS Safety Report 13328265 (Version 2)
Quarter: 2017Q2

REPORT INFORMATION
  Report Type: Report from Study
  Country: PL (occurrence: PL)
  Receive Date: 20170313
  Receipt Date: 20170501
  Transmission Date: 20170830
  Serious: Yes (Hospitalization)
  Sender: FDA-Public Use
  Company Number: PL-BIOGEN-2017BI00366000

PATIENT
  Age: 45 Year
  Sex: Female
  Weight: 63 kg

DRUGS (4)
  1. EUTHYROX [Concomitant]
     Active Substance: LEVOTHYROXINE SODIUM
     Indication: HYPOTHYROIDISM
     Route: 048
     Dates: start: 20141215
  2. DACLIZUMAB HYP [Suspect]
     Active Substance: DACLIZUMAB
     Indication: MULTIPLE SCLEROSIS
     Route: 058
     Dates: start: 20140203
  3. AXOLAN [Concomitant]
     Indication: NUTRITIONAL SUPPLEMENTATION
     Dosage: 2 CAPS/DAY
     Route: 048
     Dates: start: 20161205
  4. HEPATIL [Concomitant]
     Indication: PROPHYLAXIS
     Route: 048
     Dates: start: 2000

REACTIONS (1)
  - Stomatitis necrotising [Recovered/Resolved with Sequelae]

NARRATIVE: CASE EVENT DATE: 20170214
